FAERS Safety Report 15361095 (Version 6)
Quarter: 2019Q2

REPORT INFORMATION
  Report Type: Spontaneous
  Country: US (occurrence: US)
  Receive Date: 20180907
  Receipt Date: 20190530
  Transmission Date: 20190711
  Serious: No
  Sender: FDA-Public Use
  Company Number: US-PFIZER INC-2016359684

PATIENT
  Age: 79 Year
  Sex: Female

DRUGS (19)
  1. FLUTICASONE. [Concomitant]
     Active Substance: FLUTICASONE
     Dosage: 2 DF, 2X/DAY (1 SPRAY TWICE A DAY FOR EACH NOSTRIL)
     Route: 045
  2. MURO 128 [Concomitant]
     Active Substance: SODIUM CHLORIDE
     Dosage: UNK UNK, DAILY (INSTALL INTO R EYE AS DIRECTED DAILY)
     Route: 047
  3. RESTASIS [Concomitant]
     Active Substance: CYCLOSPORINE
     Dosage: 1 GTT, 2X/DAY
     Route: 047
  4. VITAMIN D3 [Concomitant]
     Active Substance: CHOLECALCIFEROL
     Dosage: UNK
     Route: 048
  5. ESCITALOPRAM [Concomitant]
     Active Substance: ESCITALOPRAM OXALATE
     Dosage: 20 MG, DAILY
     Route: 048
  6. TOPIRAMATE. [Concomitant]
     Active Substance: TOPIRAMATE
     Dosage: 25 MG, 4X/DAY (1 TABLET 4 TIMES A DAY)
     Route: 048
  7. TRAZODONE [Concomitant]
     Active Substance: TRAZODONE HYDROCHLORIDE
     Dosage: 200 MG, DAILY (4 TABLET EVERY DAY AT BEDTIME)
     Route: 048
  8. ALBUTEROL SULFATE. [Concomitant]
     Active Substance: ALBUTEROL SULFATE
     Dosage: 2 DF, EVERY 4 HRS (2 PUFFS EVERY 4 HOURS)
     Route: 055
  9. SYMBICORT [Concomitant]
     Active Substance: BUDESONIDE\FORMOTEROL FUMARATE DIHYDRATE
     Dosage: UNK, 2X/DAY (2 PUFFS TWICE A DAY)
  10. TIMOLOL MALEATE. [Concomitant]
     Active Substance: TIMOLOL MALEATE
     Dosage: 2 GTT, 2X/DAY (1 DROP IN EACH EYE TWICE DAILY)
     Route: 047
  11. TIMOPTIC [Concomitant]
     Active Substance: TIMOLOL MALEATE
     Dosage: UNK
  12. LYRICA [Suspect]
     Active Substance: PREGABALIN
     Dosage: 75 MG, 2X/DAY (1 CAPSULE 2 TIMES A DAY)
     Route: 048
  13. LYRICA [Suspect]
     Active Substance: PREGABALIN
     Indication: BACK PAIN
     Dosage: 75 MG, DAILY
     Route: 048
  14. ALEVE [Concomitant]
     Active Substance: NAPROXEN SODIUM
     Dosage: 220 MG, 2X/DAY
     Route: 048
  15. ASPIRIN (E.C.) [Concomitant]
     Active Substance: ASPIRIN
     Dosage: 325 MG, DAILY
     Route: 048
  16. CENTRUM SILVER [ASCORBIC ACID;BETACAROTENE;BIOTIN;CALCIUM;CHROMIUM;COL [Concomitant]
     Dosage: 1 DF, DAILY
     Route: 048
  17. FLUCONAZOLE. [Concomitant]
     Active Substance: FLUCONAZOLE
     Dosage: 150 MG, UNK (1 TABLET; REPEAT IN 5 DAYS)
     Route: 048
  18. OSTEO BI-FLEX ONE PER DAY [Concomitant]
     Dosage: 1 DF, UNK (1,500 MG-400 UNIT-100 MG TABLET)
     Route: 048
  19. VITAMIN E AL [Concomitant]
     Active Substance: TOCOPHEROL
     Dosage: UNK
     Route: 048

REACTIONS (3)
  - Sedation [Recovered/Resolved]
  - Incorrect dose administered [Unknown]
  - Drug ineffective [Unknown]
